FAERS Safety Report 7631964-0 (Version None)
Quarter: 2011Q3

REPORT INFORMATION
  Report Type: 
  Country: None (occurrence: None)
  Receive Date: 20110725
  Receipt Date: 20110517
  Transmission Date: 20111222
  Serious: Yes (Other)
  Sender: FDA-Public Use
  Company Number: US-BRISTOL-MYERS SQUIBB COMPANY-15750524

PATIENT
  Age: 74 Year
  Sex: Male
  Weight: 84 kg

DRUGS (7)
  1. POTASSIUM [Concomitant]
  2. DIOVAN [Concomitant]
  3. CARVEDILOL [Concomitant]
  4. COUMADIN [Suspect]
     Indication: CARDIAC OPERATION
     Dosage: COUMADIN5MG MON,WED,THUR,FRI,COUM2.5 MGTUE,SAT,COUMA5MG TUES,THUR,SAT,SUN,COUMA2.5MG MON,WED,FRI
     Dates: start: 20060101
  5. LASIX [Concomitant]
  6. COUMADIN [Suspect]
     Indication: CEREBROVASCULAR ACCIDENT
     Dosage: COUMADIN5MG MON,WED,THUR,FRI,COUM2.5 MGTUE,SAT,COUMA5MG TUES,THUR,SAT,SUN,COUMA2.5MG MON,WED,FRI
     Dates: start: 20060101
  7. GLUCOTROL [Concomitant]

REACTIONS (2)
  - SKIN HAEMORRHAGE [None]
  - INTERNATIONAL NORMALISED RATIO INCREASED [None]
